FAERS Safety Report 9946776 (Version 1)
Quarter: 2014Q1

REPORT INFORMATION
  Report Type: Report from Study
  Country: US (occurrence: US)
  Receive Date: 20140303
  Receipt Date: 20140303
  Transmission Date: 20141002
  Serious: No
  Sender: FDA-Public Use
  Company Number: US-ABBVIE-13P-163-1060202-00

PATIENT
  Age: 24 Year
  Sex: Female

DRUGS (14)
  1. HUMIRA [Suspect]
     Indication: CROHN^S DISEASE
     Dates: start: 201302
  2. AZULFADINE [Concomitant]
     Indication: ARTHRALGIA
  3. PENTASA [Concomitant]
     Indication: CROHN^S DISEASE
  4. NEXIUM [Concomitant]
     Indication: DYSPEPSIA
  5. OCELLA [Concomitant]
     Indication: CONTRACEPTION
     Dosage: DAILY
  6. OMEGA 3 FISH OIL [Concomitant]
     Indication: VITAMIN SUPPLEMENTATION
     Dosage: 1000 DAILY
  7. B COMPLEX 2 [Concomitant]
     Indication: PERNICIOUS ANAEMIA
     Dosage: DAILY
  8. NIACIN [Concomitant]
     Indication: CARDIOVASCULAR EVENT PROPHYLAXIS
     Dosage: 100MG DAILY
  9. ONE A DAY MULTI-VITAMIN [Concomitant]
     Indication: VITAMIN SUPPLEMENTATION
     Dosage: DAILY
  10. VITAMIN D3 [Concomitant]
     Indication: VITAMIN SUPPLEMENTATION
     Dosage: 500 IU DAILY
  11. MELATONIN [Concomitant]
     Indication: INSOMNIA
     Dosage: 1-2 AT SLEEP
  12. RELAFEN [Concomitant]
     Indication: ARTHRALGIA
     Route: 048
  13. RIFAMPIN [Concomitant]
     Indication: TUBERCULIN TEST POSITIVE
     Dosage: 150MG DAILY
     Route: 048
  14. VICODIN [Concomitant]
     Indication: PAIN
     Dosage: 5/500 ; USUALLY ABOUT 1 EVERY 4-5 WEEKS

REACTIONS (2)
  - Pyrexia [Not Recovered/Not Resolved]
  - Nasopharyngitis [Not Recovered/Not Resolved]
